FAERS Safety Report 24544338 (Version 1)
Quarter: 2024Q4

REPORT INFORMATION
  Report Type: Spontaneous
  Country: US (occurrence: US)
  Receive Date: 20241024
  Receipt Date: 20241024
  Transmission Date: 20250115
  Serious: Yes (Other)
  Sender: PFIZER
  Company Number: US-PFIZER INC-PV202400136554

PATIENT
  Age: 61 Year
  Sex: Female

DRUGS (2)
  1. XELJANZ [Suspect]
     Active Substance: TOFACITINIB CITRATE
     Indication: Rheumatoid arthritis
     Dosage: 5 MG, 2X/DAY
     Route: 048
     Dates: start: 202409
  2. ENBREL [Concomitant]
     Active Substance: ETANERCEPT
     Dosage: SURE CLICK PF AUTO INJ

REACTIONS (9)
  - Joint surgery [Unknown]
  - Product dose omission issue [Unknown]
  - Pulmonary mass [Not Recovered/Not Resolved]
  - Condition aggravated [Not Recovered/Not Resolved]
  - Lower respiratory tract congestion [Not Recovered/Not Resolved]
  - Cough [Not Recovered/Not Resolved]
  - Viral infection [Not Recovered/Not Resolved]
  - Illness [Not Recovered/Not Resolved]
  - Respiratory tract infection viral [Not Recovered/Not Resolved]

NARRATIVE: CASE EVENT DATE: 20240101
